FAERS Safety Report 22612725 (Version 1)
Quarter: 2023Q2

REPORT INFORMATION
  Report Type: Report from Study
  Country: MX (occurrence: MX)
  Receive Date: 20230617
  Receipt Date: 20230617
  Transmission Date: 20230721
  Serious: Yes (Other)
  Sender: FDA-Public Use
  Company Number: MX-002147023-NVSC2023MX136735

PATIENT
  Sex: Female
  Weight: 72 kg

DRUGS (5)
  1. BUDESONIDE [Suspect]
     Active Substance: BUDESONIDE
     Indication: Lung disorder
     Dosage: 1 DOSAGE FORM, QD (200 MCG)
     Dates: start: 2020
  2. BUDESONIDE [Suspect]
     Active Substance: BUDESONIDE
     Dosage: 2 DOSAGE FORM, QD
  3. BUDESONIDE [Suspect]
     Active Substance: BUDESONIDE
     Dosage: 3 DOSAGE FORM, QD (IN THE MORNING, AT NOON, AND AT NIGHT)
  4. BUDESONIDE [Suspect]
     Active Substance: BUDESONIDE
     Dosage: 1 DOSAGE FORM, QD (400 MCG)
  5. BUDESONIDE [Suspect]
     Active Substance: BUDESONIDE
     Dosage: 1 DOSAGE FORM, QD (200 MCG)

REACTIONS (14)
  - Syncope [Unknown]
  - Respiratory rate decreased [Not Recovered/Not Resolved]
  - Fall [Unknown]
  - Skin discolouration [Unknown]
  - Eye disorder [Unknown]
  - Blood pressure increased [Unknown]
  - Blood pressure decreased [Unknown]
  - Nervousness [Not Recovered/Not Resolved]
  - Dizziness [Not Recovered/Not Resolved]
  - Balance disorder [Not Recovered/Not Resolved]
  - Alopecia [Not Recovered/Not Resolved]
  - Madarosis [Not Recovered/Not Resolved]
  - Incorrect route of product administration [Not Recovered/Not Resolved]
  - Off label use [Unknown]
